FAERS Safety Report 6453044-2 (Version None)
Quarter: 2009Q4

REPORT INFORMATION
  Report Type: 
  Country: None (occurrence: None)
  Receive Date: 20091124
  Receipt Date: 20090504
  Transmission Date: 20100525
  Serious: No
  Sender: FDA-Public Use
  Company Number: US-ABBOTT-09P-163-0571515-00

PATIENT
  Sex: Female
  Weight: 77.18 kg

DRUGS (5)
  1. TRICOR [Suspect]
     Indication: BLOOD CHOLESTEROL INCREASED
     Dates: start: 20090201, end: 20090504
  2. VITAMIN D [Suspect]
     Indication: VITAMIN SUPPLEMENTATION
     Dates: start: 20090201, end: 20090413
  3. NIACIN ER/SIMVASTATIN [Concomitant]
     Indication: BLOOD CHOLESTEROL INCREASED
     Dosage: 500/20MG
     Dates: start: 20090101
  4. THYROID TAB [Concomitant]
     Indication: HYPOTHYROIDISM
  5. UNKNOWN ARTHRITIS MEDICATION [Concomitant]
     Indication: ARTHRITIS

REACTIONS (4)
  - FEELING HOT [None]
  - HYPOAESTHESIA ORAL [None]
  - PRURITUS [None]
  - RASH GENERALISED [None]
